FAERS Safety Report 18442909 (Version 2)
Quarter: 2021Q4

REPORT INFORMATION
  Report Type: Other
  Country: CA (occurrence: CA)
  Receive Date: 20201030
  Receipt Date: 20211022
  Transmission Date: 20220303
  Serious: Yes (Other)
  Sender: FDA-Public Use
  Company Number: CA-CELLTRION INC.-2020CA029563

PATIENT

DRUGS (16)
  1. RITUXIMAB [Suspect]
     Active Substance: RITUXIMAB
     Indication: Product used for unknown indication
     Route: 042
  2. ACTEMRA [Suspect]
     Active Substance: TOCILIZUMAB
     Indication: Product used for unknown indication
     Route: 065
  3. LEFLUNOMIDE [Suspect]
     Active Substance: LEFLUNOMIDE
     Indication: Product used for unknown indication
     Dosage: 20 MILLIGRAM, 1 EVERY 1 DAYS
     Route: 065
  4. ENBREL [Suspect]
     Active Substance: ETANERCEPT
     Indication: Rheumatoid arthritis
     Dosage: 25 MILLIGRAM, 2 EVERY 1 WEEKS
     Route: 065
  5. HUMIRA [Suspect]
     Active Substance: ADALIMUMAB
     Indication: Product used for unknown indication
     Dosage: 40 MILLIGRAM, 1 EVERY 2 WEEKS
     Route: 058
  6. HYDROXYCHLOROQUINE [Suspect]
     Active Substance: HYDROXYCHLOROQUINE
     Indication: Rheumatoid arthritis
     Dosage: 200 MILLIGRAM, 2 EVERY 1 DAYS
     Route: 065
  7. HYDROXYCHLOROQUINE SULFATE [Suspect]
     Active Substance: HYDROXYCHLOROQUINE SULFATE
     Indication: Rheumatoid arthritis
     Dosage: 200 MOL, 2 EVERY 1 DAYS
     Route: 065
  8. LEFLUNOMIDE [Suspect]
     Active Substance: LEFLUNOMIDE
     Indication: Product used for unknown indication
     Dosage: 20 MILLIGRAM, 1 EVERY 1 DAYS
     Route: 065
  9. METHOTREXATE [Suspect]
     Active Substance: METHOTREXATE
     Indication: Rheumatoid arthritis
     Dosage: 15 MILLIGRAM, 1 EVERY 1 WEEKS
     Route: 065
  10. METHOTREXATE [Suspect]
     Active Substance: METHOTREXATE
     Dosage: 20 MILLIGRAM, 1 EVERY 1 WEEKS
     Route: 065
  11. ORENCIA [Suspect]
     Active Substance: ABATACEPT
     Indication: Product used for unknown indication
     Route: 065
  12. REMICADE [Suspect]
     Active Substance: INFLIXIMAB
     Indication: Product used for unknown indication
     Dosage: 300 MILLIGRAM, 1 EVERY 6 WEEKS
     Route: 042
  13. BUPROPION [Concomitant]
     Active Substance: BUPROPION
     Indication: Rheumatoid arthritis
     Route: 065
  14. SULFASALAZINE [Concomitant]
     Active Substance: SULFASALAZINE
     Indication: Product used for unknown indication
     Dosage: 1 GRAM, 2 EVERY 1 DAYS
     Route: 065
  15. WELLBUTRIN [Concomitant]
     Active Substance: BUPROPION HYDROCHLORIDE
     Indication: Rheumatoid arthritis
     Route: 065
  16. XELJANZ [Concomitant]
     Active Substance: TOFACITINIB CITRATE
     Indication: Product used for unknown indication
     Route: 065

REACTIONS (2)
  - Rheumatoid arthritis [Unknown]
  - Therapeutic product effect incomplete [Unknown]
